FAERS Safety Report 8851126 (Version 1)
Quarter: 2012Q4

REPORT INFORMATION
  Report Type: 
  Country: US (occurrence: US)
  Receive Date: 20121020
  Receipt Date: 20121020
  Transmission Date: 20130627
  Serious: Yes (Other)
  Sender: FDA-Public Use
  Company Number: US-AMGEN-USASP2012064790

PATIENT
  Sex: Female
  Weight: 55 kg

DRUGS (1)
  1. NPLATE [Suspect]
     Indication: IDIOPATHIC THROMBOCYTOPENIC PURPURA
     Dosage: 10 mug/kg, for 03 weeks

REACTIONS (2)
  - Platelet count decreased [Unknown]
  - Endoscopic retrograde cholangiopancreatography [Unknown]
